FAERS Safety Report 25279515 (Version 2)
Quarter: 2025Q3

REPORT INFORMATION
  Report Type: Spontaneous
  Country: US (occurrence: US)
  Receive Date: 20250507
  Receipt Date: 20250728
  Transmission Date: 20251020
  Serious: No
  Sender: PFIZER
  Company Number: US-PFIZER INC-202500094682

PATIENT
  Age: 71 Year
  Sex: Female

DRUGS (6)
  1. XELJANZ XR [Suspect]
     Active Substance: TOFACITINIB CITRATE
  2. VITAMIN C [Concomitant]
     Active Substance: ASCORBIC ACID
  3. ESTRADIOL [Concomitant]
     Active Substance: ESTRADIOL
  4. SUMATRIPTAN [Concomitant]
     Active Substance: SUMATRIPTAN
  5. LEVOTHYROXINE [Concomitant]
     Active Substance: LEVOTHYROXINE
  6. TRIAMTERENE [Concomitant]
     Active Substance: TRIAMTERENE

REACTIONS (1)
  - Iron deficiency [Unknown]
